FAERS Safety Report 6234452-1 (Version None)
Quarter: 2009Q2

REPORT INFORMATION
  Report Type: 
  Country: None (occurrence: None)
  Receive Date: 20090615
  Receipt Date: 20090604
  Transmission Date: 20091009
  Serious: Yes (Life-Threatening, Hospitalization, Disabling)
  Sender: FDA-Public Use
  Company Number: 090515-0000705

PATIENT
  Age: 4 Day
  Sex: Male
  Weight: 1 kg

DRUGS (10)
  1. INDOCIN [Suspect]
     Indication: INTRAVENTRICULAR HAEMORRHAGE
     Dosage: 0.1 MG/KG; QD; IV
     Route: 042
     Dates: start: 20090509, end: 20090511
  2. INDOCIN [Suspect]
     Indication: PATENT DUCTUS ARTERIOSUS
     Dosage: 0.1 MG/KG; QD; IV
     Route: 042
     Dates: start: 20090509, end: 20090511
  3. DOMININ [Concomitant]
  4. VICILLIN [Concomitant]
  5. GENTAMICIN [Concomitant]
  6. SURFACTEN [Concomitant]
  7. KAYTWON [Concomitant]
  8. PLEAMIN [Concomitant]
  9. CALCICOL [Concomitant]
  10. HEPARIN SODIUM [Concomitant]

REACTIONS (8)
  - ANAEMIA [None]
  - CONVULSION NEONATAL [None]
  - DISSEMINATED INTRAVASCULAR COAGULATION IN NEWBORN [None]
  - HYDROCEPHALUS [None]
  - INTRAVENTRICULAR HAEMORRHAGE [None]
  - NEONATAL ASPHYXIA [None]
  - NEONATAL RESPIRATORY DISTRESS SYNDROME [None]
  - PULMONARY HAEMORRHAGE [None]
